FAERS Safety Report 14875402 (Version 1)
Quarter: 2018Q2

REPORT INFORMATION
  Report Type: Spontaneous
  Country: US (occurrence: US)
  Receive Date: 20180510
  Receipt Date: 20180510
  Transmission Date: 20180711
  Serious: No
  Sender: FDA-Public Use
  Company Number: US-BAYER-2018-083035

PATIENT
  Age: 15 Month
  Sex: Male
  Weight: 13 kg

DRUGS (1)
  1. MIRALAX [Suspect]
     Active Substance: POLYETHYLENE GLYCOL 3350
     Indication: GASTROINTESTINAL DISORDER
     Dosage: 2 OF A TEASPOON TEASPOON
     Route: 048
     Dates: start: 20180427

REACTIONS (1)
  - Product prescribing issue [Unknown]
